FAERS Safety Report 21304369 (Version 1)
Quarter: 2022Q3

REPORT INFORMATION
  Report Type: Spontaneous
  Country: US (occurrence: None)
  Receive Date: 20220907
  Receipt Date: 20220907
  Transmission Date: 20221026
  Serious: No
  Sender: FDA-Public Use
  Company Number: US-ARIS GLOBAL-202107-1277

PATIENT
  Age: 75 Year
  Sex: Male

DRUGS (23)
  1. OXERVATE [Suspect]
     Active Substance: CENEGERMIN-BKBJ
     Indication: Neurotrophic keratopathy
     Route: 047
     Dates: start: 20210713
  2. NEOMYCIN w/POLYMYXIN w/DEXAMETH [Concomitant]
  3. MAGNESIUM [Concomitant]
     Active Substance: MAGNESIUM
  4. PERCOCET [Concomitant]
     Active Substance: ACETAMINOPHEN\OXYCODONE HYDROCHLORIDE
     Dosage: 10MG-325MG
  5. DEXTROAMPHETAMINE w/AMPHETAMINE [Concomitant]
  6. DULCOLAX NOS [Concomitant]
     Active Substance: BISACODYL OR DOCUSATE SODIUM
     Dosage: DELAYED RELEASE TABLET
  7. PREDNISONE [Concomitant]
     Active Substance: PREDNISONE
  8. CLOPIDOGREL [Concomitant]
     Active Substance: CLOPIDOGREL BISULFATE
  9. FAMOTIDINE [Concomitant]
     Active Substance: FAMOTIDINE
  10. SIMVASTATIN [Concomitant]
     Active Substance: SIMVASTATIN
  11. OMEPRAZOLE [Concomitant]
     Active Substance: OMEPRAZOLE
     Dosage: DELAYED RELEASE CAPSULE
  12. IBUPROFEN [Concomitant]
     Active Substance: IBUPROFEN
  13. TAMSULOSIN HYDROCHLORIDE [Concomitant]
     Active Substance: TAMSULOSIN HYDROCHLORIDE
  14. LASIX [Concomitant]
     Active Substance: FUROSEMIDE
  15. METFORMIN HYDROCHLORIDE [Concomitant]
     Active Substance: METFORMIN HYDROCHLORIDE
  16. MORPHINE SULFATE [Concomitant]
     Active Substance: MORPHINE SULFATE
  17. LATANOPROST [Concomitant]
     Active Substance: LATANOPROST
  18. OFLOXACIN [Concomitant]
     Active Substance: OFLOXACIN
  19. ACYCLOVIR [Concomitant]
     Active Substance: ACYCLOVIR
  20. DORZOLAMIDE HYDROCHLORIDE [Concomitant]
     Active Substance: DORZOLAMIDE HYDROCHLORIDE
  21. BRIMONIDINE TARTRATE [Concomitant]
     Active Substance: BRIMONIDINE TARTRATE
  22. ATROPINE SULFATE [Concomitant]
     Active Substance: ATROPINE SULFATE
  23. COMBIGAN [Concomitant]
     Active Substance: BRIMONIDINE TARTRATE\TIMOLOL MALEATE
     Dosage: 0.2%-0.3%

REACTIONS (6)
  - Eye pain [Unknown]
  - Headache [Unknown]
  - Eye infection [Unknown]
  - Vision blurred [Unknown]
  - Eye swelling [Unknown]
  - Ocular hyperaemia [Unknown]
